FAERS Safety Report 16385423 (Version 2)
Quarter: 2019Q3

REPORT INFORMATION
  Report Type: Spontaneous
  Country: CA (occurrence: CA)
  Receive Date: 20190603
  Receipt Date: 20190702
  Transmission Date: 20191004
  Serious: Yes (Life-Threatening, Hospitalization)
  Sender: FDA-Public Use
  Company Number: CA-FERRINGPH-2019FE02997

PATIENT
  Age: 35 Year
  Sex: Female
  Weight: 51 kg

DRUGS (4)
  1. GONAL-F [Suspect]
     Active Substance: FOLLITROPIN
     Indication: IN VITRO FERTILISATION
     Dosage: 300 UNITS , 1 TIME DAILY
     Route: 058
     Dates: start: 20180203, end: 20180210
  2. DECAPEPTYL (ACETATE) [Suspect]
     Active Substance: TRIPTORELIN ACETATE
     Indication: IN VITRO FERTILISATION
     Dosage: 0.2 MG, ONCE/SINGLE
     Route: 058
     Dates: start: 20180212, end: 20180212
  3. MENOPUR [Suspect]
     Active Substance: FOLLITROPIN\LUTEINIZING HORMONE
     Indication: IN VITRO FERTILISATION
     Dosage: 150 IU, 1 TIME DAILY
     Route: 058
     Dates: start: 20180203, end: 20180210
  4. ORGALUTRAN [Suspect]
     Active Substance: GANIRELIX ACETATE
     Indication: IN VITRO FERTILISATION
     Dosage: 250 ?G, 1 TIME DAILY
     Route: 058
     Dates: start: 20180207, end: 20180210

REACTIONS (2)
  - Ventricular tachycardia [Unknown]
  - Ventricular extrasystoles [Unknown]

NARRATIVE: CASE EVENT DATE: 201802
